FAERS Safety Report 18294466 (Version 1)
Quarter: 2020Q3

REPORT INFORMATION
  Report Type: Spontaneous
  Country: US (occurrence: US)
  Receive Date: 20200922
  Receipt Date: 20200922
  Transmission Date: 20201103
  Serious: Yes (Life-Threatening, Hospitalization)
  Sender: FDA-Public Use
  Company Number: None

PATIENT
  Sex: Female

DRUGS (3)
  1. PAROXETINE. [Suspect]
     Active Substance: PAROXETINE
     Route: 048
  2. OMEPRAZOLE 40MG [Concomitant]
     Active Substance: OMEPRAZOLE
  3. LEVOTHYROXINE 88MCG [Concomitant]
     Active Substance: LEVOTHYROXINE

REACTIONS (4)
  - Hypoaesthesia oral [None]
  - Dyspnoea [None]
  - Paraesthesia oral [None]
  - Anxiety [None]
